FAERS Safety Report 11100059 (Version 1)
Quarter: 2015Q2

REPORT INFORMATION
  Report Type: Spontaneous
  Country: PT (occurrence: PT)
  Receive Date: 20150508
  Receipt Date: 20150508
  Transmission Date: 20150821
  Serious: Yes (Other)
  Sender: FDA-Public Use
  Company Number: PT-SA-2015SA059056

PATIENT
  Age: 64 Year
  Sex: Male

DRUGS (3)
  1. LISINOPRIL. [Interacting]
     Active Substance: LISINOPRIL
     Indication: BIPOLAR DISORDER
     Route: 048
     Dates: start: 20150204
  2. PRIADEL [Interacting]
     Active Substance: LITHIUM CARBONATE
     Indication: BIPOLAR DISORDER
     Dosage: O DOENTE TOMA PRIADEL? H? APROXIMADAMENTE 25 ANOS.
     Route: 048
  3. FUROSEMIDA [Suspect]
     Active Substance: FUROSEMIDE
     Route: 048
     Dates: start: 20150204

REACTIONS (3)
  - Toxicity to various agents [Recovered/Resolved]
  - Neurological symptom [Recovered/Resolved]
  - Nephrogenic diabetes insipidus [Recovered/Resolved]

NARRATIVE: CASE EVENT DATE: 20150208
